FAERS Safety Report 6024789-3 (Version None)
Quarter: 2008Q4

REPORT INFORMATION
  Report Type: 
  Country: None (occurrence: None)
  Receive Date: 20081231
  Receipt Date: 20081223
  Transmission Date: 20090506
  Serious: Yes (Other)
  Sender: FDA-Public Use
  Company Number: US-ASTRAZENECA-2008UW28690

PATIENT
  Sex: Male

DRUGS (1)
  1. CRESTOR [Suspect]
     Route: 048

REACTIONS (6)
  - BLOOD DISORDER [None]
  - BLOOD VISCOSITY INCREASED [None]
  - DIABETES MELLITUS [None]
  - HAEMORRHAGIC DIATHESIS [None]
  - MYALGIA [None]
  - PLATELET AGGREGATION [None]
